FAERS Safety Report 18168314 (Version 1)
Quarter: 2020Q3

REPORT INFORMATION
  Report Type: Spontaneous
  Country: US (occurrence: US)
  Receive Date: 20200818
  Receipt Date: 20200818
  Transmission Date: 20201103
  Serious: Yes (Other)
  Sender: FDA-Public Use
  Company Number: None

PATIENT
  Age: 67 Year
  Sex: Female
  Weight: 76.66 kg

DRUGS (3)
  1. PROLIA [Suspect]
     Active Substance: DENOSUMAB
  2. PROLIA [Concomitant]
     Active Substance: DENOSUMAB
     Dates: start: 20170612, end: 20200606
  3. PROLIA [Concomitant]
     Active Substance: DENOSUMAB

REACTIONS (4)
  - Arthralgia [None]
  - Insomnia [None]
  - Middle insomnia [None]
  - Pain in extremity [None]

NARRATIVE: CASE EVENT DATE: 20200215
